FAERS Safety Report 15443230 (Version 7)
Quarter: 2019Q1

REPORT INFORMATION
  Report Type: Spontaneous
  Country: US (occurrence: US)
  Receive Date: 20180928
  Receipt Date: 20190111
  Transmission Date: 20190417
  Serious: Yes (Hospitalization, Other)
  Sender: FDA-Public Use
  Company Number: US-OTSUKA-2018_016557

PATIENT
  Age: 50 Year
  Sex: Male
  Weight: 70.48 kg

DRUGS (14)
  1. ABILIFY [Suspect]
     Active Substance: ARIPIPRAZOLE
     Dosage: 15 MG, QD (QAM)
     Route: 048
     Dates: start: 20080418, end: 2016
  2. TRAZODONE [Concomitant]
     Active Substance: TRAZODONE HYDROCHLORIDE
     Indication: PRODUCT USED FOR UNKNOWN INDICATION
     Dosage: 50 MG, QD (QHS)
     Route: 048
  3. LEXAPRO [Suspect]
     Active Substance: ESCITALOPRAM OXALATE
     Indication: MAJOR DEPRESSION
     Dosage: 20 MG, QD (QHS)
     Route: 048
     Dates: start: 20071030
  4. IBUPROFEN. [Concomitant]
     Active Substance: IBUPROFEN
     Indication: PRODUCT USED FOR UNKNOWN INDICATION
     Dosage: 800 MG, TID
     Route: 065
  5. PROMETHAZINE - CODEINE [Concomitant]
     Active Substance: CODEINE\PROMETHAZINE
     Indication: PRODUCT USED FOR UNKNOWN INDICATION
     Dosage: UNK
     Route: 065
  6. ESCITALOPRAM [Concomitant]
     Active Substance: ESCITALOPRAM OXALATE
     Indication: PRODUCT USED FOR UNKNOWN INDICATION
     Dosage: UNK
     Route: 065
  7. ABILIFY [Suspect]
     Active Substance: ARIPIPRAZOLE
     Dosage: 10 MG, QD
     Route: 048
     Dates: start: 20160725, end: 20161103
  8. REXULTI [Concomitant]
     Active Substance: BREXPIPRAZOLE
     Indication: PRODUCT USED FOR UNKNOWN INDICATION
     Dosage: 0.5 MG, QD
     Route: 048
  9. REXULTI [Concomitant]
     Active Substance: BREXPIPRAZOLE
     Dosage: 1 MG, QD
     Route: 048
  10. AMOXICILLIN. [Concomitant]
     Active Substance: AMOXICILLIN
     Indication: PRODUCT USED FOR UNKNOWN INDICATION
     Dosage: UNK
     Route: 065
  11. ABILIFY [Suspect]
     Active Substance: ARIPIPRAZOLE
     Indication: MAJOR DEPRESSION
     Dosage: 5 MG, QD
     Route: 048
     Dates: start: 20070107, end: 200704
  12. ABILIFY [Suspect]
     Active Substance: ARIPIPRAZOLE
     Dosage: 20 MG, QD
     Route: 048
     Dates: start: 20071228, end: 20080417
  13. ABILIFY [Suspect]
     Active Substance: ARIPIPRAZOLE
     Indication: PSYCHOTIC DISORDER
     Dosage: 10 MG, QD
     Route: 048
     Dates: start: 20070413, end: 2007
  14. LEXAPRO [Suspect]
     Active Substance: ESCITALOPRAM OXALATE
     Indication: PSYCHOTIC DISORDER
     Dosage: 10 MG, QD
     Route: 048
     Dates: end: 201202

REACTIONS (50)
  - Tearfulness [Unknown]
  - Poor quality sleep [Unknown]
  - Blood urea increased [Unknown]
  - Restlessness [Unknown]
  - Diabetes mellitus [Unknown]
  - Product dose omission [Unknown]
  - Nerve root compression [Unknown]
  - Blood potassium increased [Unknown]
  - Apathy [Unknown]
  - Hyperreflexia [Unknown]
  - Blood pressure fluctuation [Unknown]
  - Asthenia [Unknown]
  - Insomnia [Unknown]
  - Economic problem [Unknown]
  - Product use in unapproved indication [Unknown]
  - Blood 1,25-dihydroxycholecalciferol decreased [Unknown]
  - Protein total increased [Unknown]
  - Back pain [Unknown]
  - Nocturia [Unknown]
  - Compulsions [Unknown]
  - Condition aggravated [Recovering/Resolving]
  - Transient ischaemic attack [Unknown]
  - Blood calcium decreased [Unknown]
  - Blood magnesium decreased [Unknown]
  - Intervertebral disc disorder [Unknown]
  - Blood albumin decreased [Unknown]
  - Pollakiuria [Unknown]
  - Gambling disorder [Recovering/Resolving]
  - Constipation [Unknown]
  - Confusional state [Recovered/Resolved]
  - Hallucination, auditory [Unknown]
  - Supraventricular tachycardia [Unknown]
  - Irritability [Unknown]
  - Crying [Unknown]
  - Musculoskeletal discomfort [Unknown]
  - Tinnitus [Unknown]
  - Blood alkaline phosphatase increased [Unknown]
  - Disturbance in attention [Unknown]
  - Pain [Unknown]
  - Impulse-control disorder [Recovering/Resolving]
  - Inappropriate schedule of product administration [Unknown]
  - Personal relationship issue [Unknown]
  - Paralysis [Unknown]
  - Blood sodium decreased [Unknown]
  - Compulsive sexual behaviour [Not Recovered/Not Resolved]
  - Self-medication [Unknown]
  - Lumbar spinal stenosis [Unknown]
  - Memory impairment [Unknown]
  - Decreased appetite [Unknown]
  - Weight decreased [Unknown]

NARRATIVE: CASE EVENT DATE: 200701
